FAERS Safety Report 20621973 (Version 1)
Quarter: 2022Q1

REPORT INFORMATION
  Report Type: Spontaneous
  Country: US (occurrence: None)
  Receive Date: 20220321
  Receipt Date: 20220321
  Transmission Date: 20220423
  Serious: Yes (Other)
  Sender: FDA-Public Use
  Company Number: None

PATIENT
  Age: 60 Year
  Sex: Male
  Weight: 77.4 kg

DRUGS (10)
  1. EZETIMIBE [Suspect]
     Active Substance: EZETIMIBE
     Indication: Blood cholesterol
     Dosage: FREQUENCY : DAILY;?
     Route: 048
     Dates: start: 20211001, end: 20220321
  2. Fiasp insulin [Concomitant]
  3. VENLAFAXINE [Concomitant]
     Active Substance: VENLAFAXINE HYDROCHLORIDE
  4. GABAPENTIN [Concomitant]
     Active Substance: GABAPENTIN
  5. LISINOPRIL [Concomitant]
     Active Substance: LISINOPRIL
  6. AMLODIPINE BESYLATE [Concomitant]
     Active Substance: AMLODIPINE BESYLATE
  7. LATANOPROST [Concomitant]
     Active Substance: LATANOPROST
  8. DORZOLAMIDE [Concomitant]
     Active Substance: DORZOLAMIDE
  9. VITAMIN B12 [Concomitant]
     Active Substance: CYANOCOBALAMIN
  10. PROBIOTICS NOS [Concomitant]
     Active Substance: PROBIOTICS NOS

REACTIONS (4)
  - Diabetic neuropathy [None]
  - Pain in extremity [None]
  - Myalgia [None]
  - Asthenia [None]

NARRATIVE: CASE EVENT DATE: 20220321
